FAERS Safety Report 23542635 (Version 1)
Quarter: 2024Q1

REPORT INFORMATION
  Report Type: Spontaneous
  Country: US (occurrence: US)
  Receive Date: 20240220
  Receipt Date: 20240220
  Transmission Date: 20240410
  Serious: Yes (Other)
  Sender: FDA-Public Use
  Company Number: US-ALKEM LABORATORIES LIMITED-US-ALKEM-2023-00189

PATIENT
  Age: 21 Month
  Sex: Female

DRUGS (2)
  1. TRIAMCINOLONE ACETONIDE [Suspect]
     Active Substance: TRIAMCINOLONE ACETONIDE
     Indication: Palmar-plantar erythrodysaesthesia syndrome
     Dosage: 40 MILLIGRAM
     Route: 026
  2. TRIAMCINOLONE ACETONIDE [Suspect]
     Active Substance: TRIAMCINOLONE ACETONIDE
     Indication: Hypertrophic scar
     Dosage: 50 MILLIGRAM, 5 WEEKS LATER
     Route: 026

REACTIONS (1)
  - Cushing^s syndrome [Recovered/Resolved]
